FAERS Safety Report 11873169 (Version 6)
Quarter: 2017Q4

REPORT INFORMATION
  Report Type: Spontaneous
  Country: JP (occurrence: JP)
  Receive Date: 20151228
  Receipt Date: 20171013
  Transmission Date: 20180320
  Serious: Yes (Other)
  Sender: FDA-Public Use
  Company Number: PHHY2015JP169947

PATIENT
  Age: 55 Year
  Sex: Female
  Weight: 54 kg

DRUGS (9)
  1. CRESTOR [Concomitant]
     Active Substance: ROSUVASTATIN CALCIUM
     Indication: HYPERCHOLESTEROLAEMIA
     Dosage: 1 DF, QD
     Route: 048
  2. DEPAS [Concomitant]
     Active Substance: ETIZOLAM
     Indication: TENSION HEADACHE
     Dosage: 1 DF, QD
     Route: 048
  3. FAMOTIDINE. [Concomitant]
     Active Substance: FAMOTIDINE
     Indication: GASTRIC ULCER
     Dosage: 1 DF, QD
     Route: 048
  4. MOHRUS [Concomitant]
     Active Substance: KETOPROFEN
     Indication: CERVICOBRACHIAL SYNDROME
     Dosage: 1 DF, QD
     Route: 061
  5. IMUSERA [Suspect]
     Active Substance: FINGOLIMOD HYDROCHLORIDE
     Indication: MULTIPLE SCLEROSIS
     Dosage: 0.5 MG, QD
     Route: 048
     Dates: start: 20140918, end: 20151216
  6. ALFAROL [Concomitant]
     Active Substance: ALFACALCIDOL
     Indication: OSTEOPOROSIS
     Dosage: 1 DF, QD
     Route: 048
  7. ISODINE [Concomitant]
     Active Substance: POVIDONE-IODINE
     Indication: INFECTION PROPHYLAXIS
     Dosage: UNK UNK, PRN
     Route: 048
  8. PREDNISOLONE. [Concomitant]
     Active Substance: PREDNISOLONE
     Indication: MULTIPLE SCLEROSIS
     Dosage: 1 DF, QD
     Route: 048
  9. METHYCOBIDE [Concomitant]
     Indication: NEUROPATHY PERIPHERAL
     Dosage: 1 DF, QD
     Route: 048

REACTIONS (3)
  - Macular degeneration [Not Recovered/Not Resolved]
  - Macular oedema [Recovered/Resolved]
  - Macular hole [Recovered/Resolved]

NARRATIVE: CASE EVENT DATE: 20151124
